FAERS Safety Report 20305474 (Version 3)
Quarter: 2025Q1

REPORT INFORMATION
  Report Type: Spontaneous
  Country: US (occurrence: US)
  Receive Date: 20220106
  Receipt Date: 20250103
  Transmission Date: 20250409
  Serious: Yes (Other)
  Sender: AMNEAL
  Company Number: US-AMNEAL PHARMACEUTICALS-2021-AMRX-02861

PATIENT
  Age: 25 Year
  Sex: Female

DRUGS (9)
  1. ACTIVELLA [Suspect]
     Active Substance: ESTRADIOL\NORETHINDRONE ACETATE
     Indication: Endometriosis
     Dosage: 1 DOSAGE FORM, DAILY
     Route: 048
     Dates: start: 20181220, end: 20210615
  2. ACTIVELLA [Suspect]
     Active Substance: ESTRADIOL\NORETHINDRONE ACETATE
     Route: 048
     Dates: start: 20180718, end: 20181220
  3. ACTIVELLA [Suspect]
     Active Substance: ESTRADIOL\NORETHINDRONE ACETATE
     Route: 048
     Dates: start: 20181220, end: 20190619
  4. ACTIVELLA [Suspect]
     Active Substance: ESTRADIOL\NORETHINDRONE ACETATE
     Dosage: 01 DOSAGE FORM, DAILY
     Route: 048
     Dates: start: 20180123, end: 20181220
  5. ELAGOLIX [Suspect]
     Active Substance: ELAGOLIX
     Indication: Endometriosis
     Dosage: 200 MILLIGRAM, 2 /DAY
     Route: 048
     Dates: start: 20181220, end: 20210615
  6. ELAGOLIX [Suspect]
     Active Substance: ELAGOLIX
     Route: 048
     Dates: start: 20181220, end: 20190619
  7. ELAGOLIX [Suspect]
     Active Substance: ELAGOLIX
     Dosage: 200 MILLIGRAM, 2 /DAY
     Route: 048
     Dates: start: 20180123, end: 20181220
  8. HYDROCODONE BITARTRATE AND ACETAMINOPHEN [Concomitant]
     Active Substance: ACETAMINOPHEN\HYDROCODONE BITARTRATE
     Indication: Analgesic therapy
     Route: 065
     Dates: start: 20171121
  9. IBUPROFEN [Concomitant]
     Active Substance: IBUPROFEN
     Indication: Analgesic therapy
     Route: 065
     Dates: start: 20171121

REACTIONS (2)
  - Maternal exposure during pregnancy [Unknown]
  - Live birth [Unknown]
